FAERS Safety Report 9531379 (Version 1)
Quarter: 2013Q2

REPORT INFORMATION
  Report Type: Spontaneous
  Country: US (occurrence: None)
  Receive Date: 20130410
  Receipt Date: 20130410
  Transmission Date: 20140414
  Serious: Yes (Other)
  Sender: FDA-Public Use
  Company Number: AUR-APL-2012-01685

PATIENT
  Age: 59 Year
  Sex: Female
  Weight: 82.99 kg

DRUGS (12)
  1. LISINOPRIL [Suspect]
     Indication: HYPERTENSION
  2. REVATIO (SILDENAFIL CITRATE) (UNKNOWN) (SILDENAFIL) [Suspect]
     Indication: PULMONARY HYPERTENSION
     Dosage: 60 MG (20 MG, 3 IN 1 D), ORAL
     Dates: start: 20120320
  3. REVATIO (SILDENAFIL CITRATE) (UNKNOWN) (SILDENAFIL) [Suspect]
     Indication: SCLERODERMA
     Dosage: 60 MG (20 MG, 3 IN 1 D), ORAL
     Dates: start: 20120320
  4. REVATIO (SILDENAFIL CITRATE) (UNKNOWN) (SILDENAFIL) [Suspect]
     Indication: RAYNAUD^S PHENOMENON
     Dosage: 60 MG (20 MG, 3 IN 1 D), ORAL
     Dates: start: 20120320
  5. REVATIO (SILDENAFIL CITRATE) (UNKNOWN) (SILDENAFIL) [Suspect]
     Indication: RAYNAUD^S PHENOMENON
     Dosage: 60 MG (20 MG, 3 IN 1 D), ORAL
     Dates: start: 20120320
  6. REVATIO (SILDENAFIL CITRATE) (UNKNOWN) (SILDENAFIL) [Suspect]
     Indication: CREST SYNDROME
     Dosage: 60 MG (20 MG, 3 IN 1 D), ORAL
     Dates: start: 20120320
  7. PLAVIX (CLOPIDOGREL) [Concomitant]
  8. ZETIA (EZETIMIBE) [Concomitant]
  9. LIPITOR (ATORVASTATIN CALCIUM) [Concomitant]
  10. ADVAIR (SERETIDE /01420901/) [Concomitant]
  11. PRILOSEC [Concomitant]
  12. ECOTRIN (ACETYLSALICYLIC ACID) [Concomitant]

REACTIONS (2)
  - Headache [None]
  - Blood pressure decreased [None]
